FAERS Safety Report 7843653 (Version 2)
Quarter: 2015Q2

REPORT INFORMATION
  Report Type: Report from Study
  Country: GB (occurrence: GB)
  Receive Date: 20110307
  Receipt Date: 20150513
  Transmission Date: 20150821
  Serious: Yes (Hospitalization)
  Sender: FDA-Public Use
  Company Number: GB-ROCHE-762919

PATIENT
  Age: 67 Year
  Sex: Male

DRUGS (4)
  1. CISPLATIN. [Suspect]
     Active Substance: CISPLATIN
     Indication: GASTRIC CANCER
     Dosage: TREATMENT DELAYED,DATE OF MOST RECENT ADMINISTARTION: 28 OCT 2010
     Route: 042
     Dates: start: 20101007
  2. CAPECITABINE. [Suspect]
     Active Substance: CAPECITABINE
     Indication: GASTRIC CANCER
     Dosage: TREATMENT DELAYED,DATE OF MOST RECENT ADMINISTARTION: 28 OCT 2010
     Route: 042
  3. EPIRUBICIN [Suspect]
     Active Substance: EPIRUBICIN
     Indication: GASTRIC CANCER
     Dosage: TREATMENT DELAYED,DATE OF MOST RECENT ADMINISTARTION: 28 OCT 2010
     Route: 042
     Dates: start: 20101007
  4. BEVACIZUMAB [Suspect]
     Active Substance: BEVACIZUMAB
     Indication: GASTRIC CANCER
     Dosage: TREATMENT STOPPED,DATE OF MOST RECENT ADMINISTARTION: 28 OCT 2010
     Route: 042

REACTIONS (1)
  - Peripheral swelling [Not Recovered/Not Resolved]

NARRATIVE: CASE EVENT DATE: 20101117
